FAERS Safety Report 10527249 (Version 3)
Quarter: 2024Q1

REPORT INFORMATION
  Report Type: Spontaneous
  Country: IT (occurrence: IT)
  Receive Date: 20141020
  Receipt Date: 20240110
  Transmission Date: 20240410
  Serious: Yes (Hospitalization)
  Sender: FDA-Public Use
  Company Number: IT-AUROBINDO-AUR-APL-2014-05189

PATIENT
  Age: 76 Year
  Sex: Male

DRUGS (9)
  1. ACYCLOVIR [Suspect]
     Active Substance: ACYCLOVIR
     Indication: Chemotherapy
     Dosage: 800 MG,DAILY,
     Route: 048
     Dates: start: 20140210, end: 20140316
  2. BACTRIM [Suspect]
     Active Substance: SULFAMETHOXAZOLE\TRIMETHOPRIM
     Indication: Chemotherapy
     Dosage: 2 DF,CYCLICAL,
     Route: 048
     Dates: start: 20140210, end: 20140310
  3. ALKERAN [Suspect]
     Active Substance: MELPHALAN
     Indication: Plasma cell myeloma
     Dosage: 16 MG,DAILY,
     Route: 048
     Dates: start: 20140212, end: 20140215
  4. LEVOFLOXACIN [Suspect]
     Active Substance: LEVOFLOXACIN
     Indication: Chemotherapy
     Dosage: 500 MG,DAILY,
     Route: 048
     Dates: start: 20140210, end: 20140220
  5. FILGRASTIM [Suspect]
     Active Substance: FILGRASTIM
     Indication: Chemotherapy
     Dosage: 30 IU,UNK,
     Route: 058
     Dates: start: 20140217, end: 20140221
  6. BORTEZOMIB [Suspect]
     Active Substance: BORTEZOMIB
     Indication: Plasma cell myeloma
     Dosage: 2.4 MG,CYCLICAL,
     Route: 065
     Dates: start: 20140210, end: 20140313
  7. LASIX [Concomitant]
     Active Substance: FUROSEMIDE
     Indication: Product used for unknown indication
     Dosage: 25 MG,UNK,
     Route: 065
  8. ASPIRIN [Concomitant]
     Active Substance: ASPIRIN
     Indication: Product used for unknown indication
     Dosage: 100 MG,UNK,
     Route: 065
  9. RAMIPRIL [Concomitant]
     Active Substance: RAMIPRIL
     Indication: Product used for unknown indication
     Dosage: 10 MG,UNK,
     Route: 065

REACTIONS (7)
  - Erythema [Recovering/Resolving]
  - Pruritus [Recovering/Resolving]
  - Rash maculo-papular [Recovering/Resolving]
  - Periorbital oedema [Recovering/Resolving]
  - Adverse drug reaction [Recovering/Resolving]
  - Off label use [Recovered/Resolved]
  - Urticaria [Recovering/Resolving]

NARRATIVE: CASE EVENT DATE: 20140210
